FAERS Safety Report 15043197 (Version 6)
Quarter: 2019Q4

REPORT INFORMATION
  Report Type: Report from Study
  Country: None (occurrence: IL)
  Receive Date: 20180621
  Receipt Date: 20191002
  Transmission Date: 20200122
  Serious: Yes (Hospitalization, Other)
  Sender: FDA-Public Use
  Company Number: IL-ABBVIE-18K-082-2390965-00

PATIENT
  Age: 78 Year
  Sex: Male

DRUGS (2)
  1. DUODOPA [Suspect]
     Active Substance: CARBIDOPA\LEVODOPA
     Dosage: MORNING DOSE 13ML, CONTINUOUS DOSE 3.5ML/HOUR, EXTRA DOSE 2ML
     Route: 050
  2. DUODOPA [Suspect]
     Active Substance: CARBIDOPA\LEVODOPA
     Indication: PARKINSON^S DISEASE
     Route: 050
     Dates: start: 20180124

REACTIONS (19)
  - Asthenia [Unknown]
  - Cardiac failure [Not Recovered/Not Resolved]
  - Discoloured vomit [Unknown]
  - Pneumonia [Recovered/Resolved]
  - General physical health deterioration [Unknown]
  - Hepatic enzyme increased [Unknown]
  - Myocardial infarction [Unknown]
  - Bedridden [Unknown]
  - Pneumonia [Unknown]
  - Ascites [Unknown]
  - Dysphagia [Unknown]
  - Faeces discoloured [Unknown]
  - Thrombosis [Unknown]
  - Feeling abnormal [Unknown]
  - Pulmonary oedema [Unknown]
  - Pleural effusion [Unknown]
  - Anaemia [Unknown]
  - Crepitations [Unknown]
  - Communication disorder [Unknown]

NARRATIVE: CASE EVENT DATE: 201805
